FAERS Safety Report 19466784 (Version 1)
Quarter: 2021Q2

REPORT INFORMATION
  Report Type: Spontaneous
  Country: DE (occurrence: DE)
  Receive Date: 20210628
  Receipt Date: 20210628
  Transmission Date: 20210717
  Serious: Yes (Hospitalization)
  Sender: FDA-Public Use
  Company Number: DE-BAUSCH-BL-2021-021169

PATIENT
  Age: 27 Year
  Sex: Male

DRUGS (4)
  1. CORTISON [Suspect]
     Active Substance: CORTISONE ACETATE
     Indication: DYSPNOEA
     Route: 065
  2. CORTISON [Suspect]
     Active Substance: CORTISONE ACETATE
     Indication: BRONCHITIS
     Dosage: SPRAY
     Route: 065
  3. OFLOXACIN. [Suspect]
     Active Substance: OFLOXACIN
     Indication: PRODUCT USED FOR UNKNOWN INDICATION
     Route: 065
     Dates: start: 201910, end: 201910
  4. LEVOFLOXACIN AUROBINDO [Suspect]
     Active Substance: LEVOFLOXACIN
     Indication: EPIDIDYMITIS
     Route: 065
     Dates: start: 20191017, end: 20191030

REACTIONS (34)
  - Depressed mood [Unknown]
  - Disturbance in attention [Unknown]
  - Depression [Unknown]
  - Asthenia [Unknown]
  - Social avoidant behaviour [Unknown]
  - Productive cough [Unknown]
  - Chronic fatigue syndrome [Unknown]
  - Pain in extremity [Unknown]
  - Anxiety [Unknown]
  - Palpitations [Unknown]
  - Pallor [Recovering/Resolving]
  - Sleep disorder [Unknown]
  - Dyspnoea [Unknown]
  - Depression [Unknown]
  - Apathy [Unknown]
  - Weight bearing difficulty [Unknown]
  - Pain [Recovering/Resolving]
  - Somnolence [Recovering/Resolving]
  - General physical health deterioration [Unknown]
  - Bedridden [Unknown]
  - Hyperhidrosis [Unknown]
  - Temperature intolerance [Unknown]
  - Mood altered [Unknown]
  - Anxiety [Unknown]
  - Hyperacusis [Unknown]
  - Palpitations [Unknown]
  - Loss of personal independence in daily activities [Unknown]
  - Influenza like illness [Unknown]
  - Feeling hot [Unknown]
  - Impaired work ability [Not Recovered/Not Resolved]
  - Fatigue [Unknown]
  - Cough [Unknown]
  - Sinus tachycardia [Recovered/Resolved]
  - Tremor [Unknown]

NARRATIVE: CASE EVENT DATE: 2019
